FAERS Safety Report 5984276-5 (Version None)
Quarter: 2008Q4

REPORT INFORMATION
  Report Type: 
  Country: None (occurrence: None)
  Receive Date: 20081208
  Receipt Date: 20081202
  Transmission Date: 20090506
  Serious: Yes (Hospitalization)
  Sender: FDA-Public Use
  Company Number: JP-ASTRAZENECA-2008AP05662

PATIENT
  Age: 10 Month
  Sex: Female
  Weight: 8 kg

DRUGS (26)
  1. PULMICORT RESPULES [Suspect]
     Indication: ASTHMA
     Route: 055
     Dates: start: 20070920
  2. ONON DRYSYRUP [Concomitant]
     Indication: ASTHMA
     Dosage: NUMBER OF SEPARATE DOSAGES UNKNOWN
     Route: 048
     Dates: start: 20070618
  3. MEDICON [Concomitant]
     Indication: ASTHMA
     Dosage: AS REQUIRED
     Route: 048
     Dates: start: 20070920
  4. PERIACTIN [Concomitant]
     Indication: ASTHMA
     Dosage: AS REQUIRED
     Route: 048
     Dates: start: 20070920
  5. MUCODYNE [Concomitant]
     Indication: ASTHMA
     Dosage: AS REQUIRED
     Route: 048
     Dates: start: 20070920
  6. FOSMICIN [Concomitant]
     Indication: ENTEROCOLITIS
     Dosage: NUMBER OF SEPARATE DOSAGES UNKNOWN
     Route: 048
     Dates: start: 20070930, end: 20071002
  7. FOSMICIN [Concomitant]
     Dosage: NUMBER OF SEPARATE DOSAGES UNKNOWN
     Route: 048
     Dates: start: 20071011, end: 20071016
  8. HOKUNALIN [Concomitant]
     Indication: ASTHMA
     Dosage: AS REQUIRED
     Route: 048
     Dates: start: 20070920
  9. ENTERONON-R [Concomitant]
     Indication: ENTEROCOLITIS
     Dosage: NUMBER OF SEPARATE DOSAGES UNKNOWN
     Route: 048
     Dates: start: 20070930, end: 20071002
  10. ENTERONON-R [Concomitant]
     Dosage: NUMBER OF SEPARATE DOSAGES UNKNOWN
     Route: 048
     Dates: start: 20071011, end: 20071016
  11. BIOFERMIN [Concomitant]
     Indication: ENTEROCOLITIS
     Dosage: NUMBER OF SEPARATE DOSAGES UNKNOWN
     Route: 048
     Dates: start: 20071005, end: 20071009
  12. SOLU-MEDROL [Concomitant]
     Indication: ASTHMA
     Dosage: NUMBER OF SEPARATE DOSAGES UNKNOWN
     Route: 041
     Dates: start: 20071114, end: 20071121
  13. SOLU-MEDROL [Concomitant]
     Dosage: NUMBER OF SEPARATE DOSAGES UNKNOWN
     Route: 041
     Dates: start: 20080114, end: 20080117
  14. SOLU-MEDROL [Concomitant]
     Dosage: NUMBER OF SEPARATE DOSAGES UNKNOWN
     Route: 041
     Dates: start: 20080119, end: 20080121
  15. VENETLIN [Concomitant]
     Indication: ASTHMA
     Dosage: NUMBER OF SEPARATE DOSAGES UNKNOWN
     Route: 055
     Dates: start: 20071114, end: 20071122
  16. VENETLIN [Concomitant]
     Dosage: NUMBER OF SEPARATE DOSAGES UNKNOWN
     Route: 055
     Dates: start: 20080114, end: 20080121
  17. UNASYN [Concomitant]
     Indication: BRONCHITIS
     Dosage: NUMBER OF SEPARATE DOSAGES UNKNOWN
     Route: 041
     Dates: start: 20071115, end: 20071117
  18. FAMOTIDINE [Concomitant]
     Indication: GASTRITIS
     Dosage: NUMBER OF SEPARATE DOSAGES UNKNOWN
     Route: 042
     Dates: start: 20071116, end: 20071121
  19. PASETOCIN [Concomitant]
     Indication: UPPER RESPIRATORY TRACT INFLAMMATION
     Dosage: NUMBER OF SEPARATE DOSAGES UNKNOWN
     Route: 048
     Dates: start: 20071212, end: 20071217
  20. PASETOCIN [Concomitant]
     Indication: BRONCHITIS
     Dosage: NUMBER OF SEPARATE DOSAGES UNKNOWN
     Route: 048
     Dates: start: 20071212, end: 20071217
  21. PASETOCIN [Concomitant]
     Dosage: NUMBER OF SEPARATE DOSAGES UNKNOWN
     Route: 048
     Dates: start: 20080212, end: 20080216
  22. PASETOCIN [Concomitant]
     Dosage: NUMBER OF SEPARATE DOSAGES UNKNOWN
     Route: 048
     Dates: start: 20080212, end: 20080216
  23. PASETOCIN [Concomitant]
     Dosage: NUMBER OF SEPARATE DOSAGES UNKNOWN
     Route: 048
     Dates: start: 20080225, end: 20080228
  24. PASETOCIN [Concomitant]
     Dosage: NUMBER OF SEPARATE DOSAGES UNKNOWN
     Route: 048
     Dates: start: 20080225, end: 20080228
  25. PANSPORIN [Concomitant]
     Indication: BRONCHITIS
     Dosage: NUMBER OF SEPARATE DOSAGES UNKNOWN
     Route: 042
     Dates: start: 20080114, end: 20080117
  26. SOLU-CORTEF [Concomitant]
     Indication: ASTHMA
     Dosage: AS REQUIRED
     Route: 041
     Dates: start: 20080114, end: 20080114

REACTIONS (2)
  - ASTHMA [None]
  - BRONCHITIS [None]
